FAERS Safety Report 9219615 (Version 1)
Quarter: 2013Q2

REPORT INFORMATION
  Report Type: Spontaneous
  Country: US (occurrence: None)
  Receive Date: 20130408
  Receipt Date: 20130408
  Transmission Date: 20140414
  Serious: Yes (Hospitalization, Other)
  Sender: FDA-Public Use
  Company Number: None

PATIENT
  Age: 44 Year
  Sex: Female
  Weight: 65.77 kg

DRUGS (2)
  1. ZOLPIDEM [Suspect]
     Indication: DEPRESSION
     Dosage: 10 MG NIGHTLY CUTANEOUS
     Route: 003
     Dates: start: 20050125, end: 20130405
  2. ZOLPIDEM [Suspect]
     Indication: INSOMNIA
     Dosage: 10 MG NIGHTLY CUTANEOUS
     Route: 003
     Dates: start: 20050125, end: 20130405

REACTIONS (5)
  - Influenza [None]
  - Somnambulism [None]
  - Memory impairment [None]
  - Imprisonment [None]
  - Toxicologic test abnormal [None]
